FAERS Safety Report 4488456-X (Version None)
Quarter: 2004Q4

REPORT INFORMATION
  Report Type: 
  Country: None (occurrence: None)
  Receive Date: 20041026
  Receipt Date: 20041011
  Transmission Date: 20050328
  Serious: Yes (Hospitalization, Other)
  Sender: FDA-Public Use
  Company Number: US_010872160

PATIENT
  Age: 49 Year
  Sex: Male

DRUGS (5)
  1. HUMALOG [Suspect]
     Indication: DIABETES MELLITUS
     Dosage: 90 U DAY
  2. HUMULIN N [Suspect]
     Indication: DIABETES MELLITUS
     Dosage: 40 U DAY
  3. HUMULIN R [Suspect]
     Indication: DIABETES MELLITUS
     Dosage: 12 U/2 DAY
  4. KADIAN [Concomitant]
  5. LASIX [Concomitant]

REACTIONS (19)
  - AORTIC SURGERY [None]
  - BACK INJURY [None]
  - BLOOD GLUCOSE INCREASED [None]
  - CELLULITIS [None]
  - FALL [None]
  - FOOT FRACTURE [None]
  - GALLBLADDER OPERATION [None]
  - INFECTION [None]
  - MYOCARDIAL INFARCTION [None]
  - NEUROPATHY [None]
  - OVERWEIGHT [None]
  - PAIN [None]
  - PHARMACEUTICAL PRODUCT COMPLAINT [None]
  - SPINAL FRACTURE [None]
  - SWELLING [None]
  - THERMAL BURN [None]
  - UPPER LIMB FRACTURE [None]
  - VEIN DISORDER [None]
  - WHEELCHAIR USER [None]
